FAERS Safety Report 5522576-3 (Version None)
Quarter: 2007Q4

REPORT INFORMATION
  Report Type: 
  Country: None (occurrence: None)
  Receive Date: 20071120
  Receipt Date: 20071109
  Transmission Date: 20080405
  Serious: Yes (Hospitalization, Other)
  Sender: FDA-Public Use
  Company Number: HQWYE083826OCT04

PATIENT
  Sex: Female

DRUGS (4)
  1. PREMARIN [Suspect]
  2. PROVERA [Suspect]
  3. MEDROXYPROGESTERONE ACETATE [Suspect]
  4. ESTRACE [Suspect]

REACTIONS (1)
  - BREAST CANCER METASTATIC [None]
